FAERS Safety Report 8890998 (Version 4)
Quarter: 2013Q2

REPORT INFORMATION
  Report Type: Spontaneous
  Country: US (occurrence: US)
  Receive Date: 20121106
  Receipt Date: 20130521
  Transmission Date: 20140414
  Serious: Yes (Hospitalization, Other)
  Sender: FDA-Public Use
  Company Number: US-009507513-1211USA001659

PATIENT
  Sex: Female
  Weight: 79.37 kg

DRUGS (5)
  1. FOSAMAX [Suspect]
     Indication: OSTEOPENIA
     Dosage: 10 MG, QD
     Route: 048
     Dates: start: 1999, end: 201002
  2. FOSAMAX [Suspect]
     Indication: OSTEOPOROSIS
     Dosage: 70 MG, QW
     Route: 048
     Dates: end: 201002
  3. FOSAMAX PLUS D [Suspect]
     Indication: OSTEOPENIA
     Dosage: 70/2800 MG QW
     Route: 048
  4. FOSAMAX [Suspect]
     Indication: OSTEOPOROSIS PROPHYLAXIS
     Route: 048
  5. FOSAMAX [Suspect]
     Indication: OSTEOPOROSIS

REACTIONS (36)
  - Femur fracture [Recovering/Resolving]
  - Femur fracture [Unknown]
  - Open reduction of fracture [Recovering/Resolving]
  - Fall [Recovering/Resolving]
  - Closed fracture manipulation [Unknown]
  - Malignant breast lump removal [Recovered/Resolved]
  - Internal fixation of fracture [Unknown]
  - Internal fixation of fracture [Unknown]
  - Bone graft [Unknown]
  - Breast cancer [Recovered/Resolved]
  - Suture insertion [Recovering/Resolving]
  - Open reduction of fracture [Unknown]
  - Wrist fracture [Unknown]
  - Femur fracture [Not Recovered/Not Resolved]
  - Femur fracture [Unknown]
  - Low turnover osteopathy [Unknown]
  - Ligament sprain [Unknown]
  - Rib fracture [Unknown]
  - Foot fracture [Unknown]
  - Osteoarthritis [Unknown]
  - Fracture nonunion [Unknown]
  - Impaired healing [Unknown]
  - Hypertension [Unknown]
  - Rosacea [Recovering/Resolving]
  - Anxiety [Unknown]
  - Foot fracture [Unknown]
  - Onychomycosis [Unknown]
  - Laceration [Recovering/Resolving]
  - Bone disorder [Unknown]
  - Rib fracture [Unknown]
  - Vascular calcification [Unknown]
  - Osteomyelitis [Unknown]
  - Endodontic procedure [Unknown]
  - Foot fracture [Unknown]
  - Dizziness [Unknown]
  - Drug hypersensitivity [Unknown]
